FAERS Safety Report 15366338 (Version 1)
Quarter: 2018Q3

REPORT INFORMATION
  Report Type: Spontaneous
  Country: US (occurrence: US)
  Receive Date: 20180910
  Receipt Date: 20180910
  Transmission Date: 20181010
  Serious: Yes (Other)
  Sender: FDA-Public Use
  Company Number: US-SA-2018SA093178

PATIENT
  Age: 47 Year
  Sex: Female
  Weight: 63.5 kg

DRUGS (6)
  1. HERCEPTIN [Concomitant]
     Active Substance: TRASTUZUMAB
     Dosage: UNK
  2. LEXAPRO [Concomitant]
     Active Substance: ESCITALOPRAM OXALATE
  3. TAXOTERE [Suspect]
     Active Substance: DOCETAXEL
     Indication: BREAST CANCER FEMALE
     Dosage: WOULD GO FROM EVERY WEEK TO EVERY THREE WEEKS. THEN BACK TO EVERY WEEK.
     Route: 051
     Dates: start: 20040421, end: 20040421
  4. TAXOTERE [Suspect]
     Active Substance: DOCETAXEL
     Dosage: WOULD GO FROM EVERY WEEK TO EVERY THREE WEEKS. THEN BACK TO EVERY WEEK.
     Route: 051
     Dates: start: 20041221, end: 20041221
  5. TAXOL [Concomitant]
     Active Substance: PACLITAXEL
  6. METOPROLOL. [Concomitant]
     Active Substance: METOPROLOL

REACTIONS (1)
  - Alopecia [Recovering/Resolving]

NARRATIVE: CASE EVENT DATE: 20050701
